FAERS Safety Report 13446906 (Version 6)
Quarter: 2017Q3

REPORT INFORMATION
  Report Type: Spontaneous
  Country: US (occurrence: US)
  Receive Date: 20170417
  Receipt Date: 20170914
  Transmission Date: 20171127
  Serious: Yes (Other)
  Sender: FDA-Public Use
  Company Number: US-PFIZER INC-2017163499

PATIENT
  Age: 79 Year
  Sex: Male
  Weight: 84.35 kg

DRUGS (5)
  1. ALPRAZOLAM. [Suspect]
     Active Substance: ALPRAZOLAM
     Indication: ANXIETY DISORDER
     Dosage: 0.5 MG, UNK
     Route: 048
  2. ALPRAZOLAM. [Suspect]
     Active Substance: ALPRAZOLAM
     Dosage: 2 MG, DAILY
     Route: 048
  3. ALPRAZOLAM. [Suspect]
     Active Substance: ALPRAZOLAM
     Dosage: 2 MG, UNK
     Route: 048
  4. ALPRAZOLAM. [Suspect]
     Active Substance: ALPRAZOLAM
     Dosage: 3.5 MG, DAILY (2 MG TABLET IN THE AM AND 3/4 2 MG TABLET IN THE EVENING)
     Route: 048
  5. ALPRAZOLAM. [Suspect]
     Active Substance: ALPRAZOLAM
     Dosage: 1 MG, UNK
     Route: 048

REACTIONS (9)
  - Loss of consciousness [Unknown]
  - Drug ineffective [Unknown]
  - Intentional product misuse [Unknown]
  - Amnesia [Unknown]
  - Heart rate increased [Unknown]
  - Heart rate decreased [Unknown]
  - Panic attack [Unknown]
  - Hypertension [Unknown]
  - Insomnia [Unknown]
